FAERS Safety Report 9722965 (Version 1)
Quarter: 2013Q4

REPORT INFORMATION
  Report Type: Spontaneous
  Country: US (occurrence: None)
  Receive Date: 20131127
  Receipt Date: 20131127
  Transmission Date: 20140711
  Serious: Yes (Other)
  Sender: FDA-Public Use
  Company Number: None

PATIENT
  Age: 54 Year
  Sex: Female
  Weight: 81.65 kg

DRUGS (1)
  1. METHOTREXATE [Suspect]
     Dosage: 1 PILL ONCE DAILY TAKEN BY MOUTH
     Dates: start: 20100921, end: 20110120

REACTIONS (3)
  - Cough [None]
  - Sinus headache [None]
  - Pain [None]
